FAERS Safety Report 23545929 (Version 1)
Quarter: 2024Q1

REPORT INFORMATION
  Report Type: Spontaneous
  Country: US (occurrence: None)
  Receive Date: 20240219
  Receipt Date: 20240219
  Transmission Date: 20240410
  Serious: Yes (Hospitalization)
  Sender: FDA-Public Use
  Company Number: None

PATIENT
  Sex: Female

DRUGS (6)
  1. TIVICAY [Suspect]
     Active Substance: DOLUTEGRAVIR SODIUM
     Indication: HIV infection
     Dosage: 50MG ONCE DAILY ORAL?
     Route: 048
     Dates: start: 202108
  2. DESCOVY [Suspect]
     Active Substance: EMTRICITABINE\TENOFOVIR ALAFENAMIDE FUMARATE
     Indication: HIV infection
     Dosage: 200/25MG ONCE DAILY ORAL?
     Route: 048
     Dates: start: 202108
  3. ASPIRIN [Concomitant]
     Active Substance: ASPIRIN
  4. ATROVASTIN [Concomitant]
  5. EZETIMIBE [Concomitant]
     Active Substance: EZETIMIBE
  6. TASIGNA [Concomitant]
     Active Substance: NILOTINIB

REACTIONS (1)
  - Cerebrovascular accident [None]
